FAERS Safety Report 14491435 (Version 1)
Quarter: 2018Q1

REPORT INFORMATION
  Report Type: Spontaneous
  Country: GB (occurrence: GB)
  Receive Date: 20180206
  Receipt Date: 20180206
  Transmission Date: 20180509
  Serious: Yes (Other)
  Sender: FDA-Public Use
  Company Number: GB-GLAXOSMITHKLINE-GB2018GSK019668

PATIENT
  Age: 36 Year
  Sex: Female

DRUGS (1)
  1. SERETIDE [Suspect]
     Active Substance: FLUTICASONE PROPIONATE\SALMETEROL XINAFOATE
     Indication: ASTHMA
     Dosage: UNK
     Dates: start: 1997

REACTIONS (4)
  - Dysphonia [Unknown]
  - Sinus disorder [Unknown]
  - Fungal oesophagitis [Unknown]
  - Glaucoma [Unknown]

NARRATIVE: CASE EVENT DATE: 201710
